FAERS Safety Report 14235389 (Version 1)
Quarter: 2017Q4

REPORT INFORMATION
  Report Type: Report from Study
  Country: GB (occurrence: GB)
  Receive Date: 20171129
  Receipt Date: 20171129
  Transmission Date: 20180321
  Serious: Yes (Hospitalization, Other)
  Sender: FDA-Public Use
  Company Number: GB-ASPEN-GLO2015GB009892

PATIENT
  Age: 61 Year
  Sex: Female

DRUGS (28)
  1. LANSOPRAZOLE. [Concomitant]
     Active Substance: LANSOPRAZOLE
     Indication: GASTROINTESTINAL DISORDER
     Route: 065
  2. COTRIMOXAZOLE [Concomitant]
     Active Substance: SULFAMETHOXAZOLE\TRIMETHOPRIM
     Route: 065
  3. PARACETAMOL [Concomitant]
     Active Substance: ACETAMINOPHEN
     Indication: ANALGESIC THERAPY
     Route: 065
  4. OXYNORM [Concomitant]
     Active Substance: OXYCODONE HYDROCHLORIDE
     Indication: ANALGESIC THERAPY
     Route: 065
  5. NITROFURANTOIN. [Concomitant]
     Active Substance: NITROFURANTOIN
     Indication: URINARY TRACT INFECTION
     Route: 065
  6. SALBUTAMOL [Concomitant]
     Active Substance: ALBUTEROL
     Indication: ASTHMA
     Route: 065
  7. SALBUTAMOL [Concomitant]
     Active Substance: ALBUTEROL
     Route: 065
  8. DEXAMETHASONE. [Suspect]
     Active Substance: DEXAMETHASONE
     Route: 065
  9. COTRIMOXAZOLE [Concomitant]
     Active Substance: SULFAMETHOXAZOLE\TRIMETHOPRIM
     Indication: ANTIBIOTIC PROPHYLAXIS
     Route: 065
  10. DEXAMETHASONE. [Suspect]
     Active Substance: DEXAMETHASONE
     Indication: PRODUCT USED FOR UNKNOWN INDICATION
     Dosage: UNK
     Route: 065
  11. NITROFURANTOIN. [Concomitant]
     Active Substance: NITROFURANTOIN
     Route: 065
  12. DEXAMETHASONE. [Suspect]
     Active Substance: DEXAMETHASONE
     Dosage: 10 MG
     Route: 065
     Dates: start: 20150225, end: 20150309
  13. POMALIDOMIDE [Suspect]
     Active Substance: POMALIDOMIDE
     Indication: PLASMA CELL MYELOMA
     Dosage: 2 MILLIGRAM
     Route: 048
     Dates: start: 20150225, end: 20150308
  14. ACICLOVIR [Concomitant]
     Active Substance: ACYCLOVIR
     Indication: ANTIVIRAL TREATMENT
     Route: 065
  15. ACICLOVIR [Concomitant]
     Active Substance: ACYCLOVIR
     Route: 065
  16. OXYNORM [Concomitant]
     Active Substance: OXYCODONE HYDROCHLORIDE
     Route: 065
  17. DOCUSATE SODIUM. [Concomitant]
     Active Substance: DOCUSATE SODIUM
     Indication: CONSTIPATION
     Route: 065
  18. ENOXAPARIN [Concomitant]
     Active Substance: ENOXAPARIN
     Indication: COAGULOPATHY
     Route: 065
  19. ZOMETA [Concomitant]
     Active Substance: ZOLEDRONIC ACID
     Indication: PLASMA CELL MYELOMA
     Route: 065
  20. GABAPENTIN. [Concomitant]
     Active Substance: GABAPENTIN
     Indication: ANALGESIC THERAPY
     Route: 065
  21. PARACETAMOL [Concomitant]
     Active Substance: ACETAMINOPHEN
     Route: 065
  22. ENOXAPARIN [Concomitant]
     Active Substance: ENOXAPARIN
     Route: 065
  23. ZOMETA [Concomitant]
     Active Substance: ZOLEDRONIC ACID
     Route: 065
  24. OXYCONTIN [Concomitant]
     Active Substance: OXYCODONE HYDROCHLORIDE
     Indication: ANALGESIC THERAPY
     Route: 065
  25. OXYCONTIN [Concomitant]
     Active Substance: OXYCODONE HYDROCHLORIDE
     Route: 065
  26. LANSOPRAZOLE. [Concomitant]
     Active Substance: LANSOPRAZOLE
     Route: 065
  27. GABAPENTIN. [Concomitant]
     Active Substance: GABAPENTIN
     Route: 065
  28. SODIUM DOCUSATE [Concomitant]
     Active Substance: DOCUSATE SODIUM
     Route: 065

REACTIONS (1)
  - Neutropenic sepsis [Recovered/Resolved]

NARRATIVE: CASE EVENT DATE: 20150309
